FAERS Safety Report 25894953 (Version 1)
Quarter: 2025Q4

REPORT INFORMATION
  Report Type: Spontaneous
  Country: DO (occurrence: DO)
  Receive Date: 20251008
  Receipt Date: 20251008
  Transmission Date: 20260117
  Serious: Yes (Hospitalization, Other)
  Sender: NOVARTIS
  Company Number: DO-002147023-NVSC2025DO151549

PATIENT
  Age: 37 Year
  Sex: Male

DRUGS (5)
  1. TEGRETOL [Suspect]
     Active Substance: CARBAMAZEPINE
     Indication: Epilepsy
     Dosage: 400 MG
     Route: 065
  2. BRIVARACETAM [Concomitant]
     Active Substance: BRIVARACETAM
     Indication: Epilepsy
     Dosage: 100 MG, BID
     Route: 065
  3. DIVALPROEX SODIUM [Concomitant]
     Active Substance: DIVALPROEX SODIUM
     Indication: Epilepsy
     Dosage: 2.5 DOSAGE FORM, QD
     Route: 065
  4. ESCITALOPRAM [Concomitant]
     Active Substance: ESCITALOPRAM OXALATE
     Indication: Epilepsy
     Dosage: 20 MG, QD
     Route: 065
  5. CLOBAZAM [Concomitant]
     Active Substance: CLOBAZAM
     Indication: Epilepsy
     Dosage: 2.5 DOSAGE FORM, QD
     Route: 065

REACTIONS (9)
  - Toxicity to various agents [Unknown]
  - Dehydration [Recovered/Resolved]
  - Dysmetria [Unknown]
  - Leukopenia [Unknown]
  - Thrombocytopenia [Unknown]
  - Dysarthria [Unknown]
  - Nystagmus [Unknown]
  - Respiratory disorder [Unknown]
  - Wrong product procured [Unknown]
